FAERS Safety Report 10056755 (Version 2)
Quarter: 2014Q2

REPORT INFORMATION
  Report Type: Spontaneous
  Country: US (occurrence: US)
  Receive Date: 20140403
  Receipt Date: 20140512
  Transmission Date: 20141212
  Serious: Yes (Other)
  Sender: FDA-Public Use
  Company Number: US-GLAXOSMITHKLINE-A1067068A

PATIENT
  Age: 75 Year
  Sex: Female

DRUGS (18)
  1. BREO ELLIPTA [Suspect]
     Indication: CHRONIC OBSTRUCTIVE PULMONARY DISEASE
     Dosage: 1PUFF PER DAY
     Route: 055
     Dates: start: 201401
  2. ADVAIR DISKUS [Suspect]
     Indication: PRODUCT USED FOR UNKNOWN INDICATION
     Route: 065
  3. FUROSEMIDE [Suspect]
     Indication: PRODUCT USED FOR UNKNOWN INDICATION
     Dosage: 40MG PER DAY
  4. MOUTH RINSE [Suspect]
     Indication: CANDIDA INFECTION
  5. MONTELUKAST [Concomitant]
  6. ALLOPURINOL [Concomitant]
  7. AMITRIPTYLIN [Concomitant]
  8. LOVASTATIN [Concomitant]
  9. LOSARTAN [Concomitant]
  10. SPIRIVA [Concomitant]
  11. COMBIVENT [Concomitant]
  12. STOOL SOFTENER [Concomitant]
  13. VITAMIN D3 [Concomitant]
  14. POTASSIUM [Concomitant]
  15. SUPER B COMPLEX [Concomitant]
  16. MAGNESIUM [Concomitant]
  17. HYDROCODONE [Concomitant]
  18. OXYGEN [Concomitant]

REACTIONS (9)
  - Aphagia [Recovered/Resolved]
  - Oral candidiasis [Not Recovered/Not Resolved]
  - Oral pain [Recovered/Resolved]
  - Dysphonia [Recovered/Resolved]
  - Aphonia [Recovered/Resolved]
  - Dry mouth [Recovered/Resolved]
  - Stomatitis [Recovered/Resolved]
  - Diarrhoea [Unknown]
  - Dyspnoea [Unknown]
